FAERS Safety Report 6746812-0 (Version None)
Quarter: 2010Q2

REPORT INFORMATION
  Report Type: 
  Country: None (occurrence: None)
  Receive Date: 20100528
  Receipt Date: 20091210
  Transmission Date: 20101027
  Serious: No
  Sender: FDA-Public Use
  Company Number: A0834583A

PATIENT
  Age: 52 Year
  Sex: Male

DRUGS (2)
  1. VENTOLIN [Suspect]
     Dosage: 2PUFF AS REQUIRED
     Route: 055
     Dates: start: 20091001
  2. NO CONCURRENT MEDICATION [Concomitant]

REACTIONS (3)
  - BLOOD PRESSURE INCREASED [None]
  - FEELING ABNORMAL [None]
  - MUSCULAR WEAKNESS [None]
